FAERS Safety Report 5028583-1 (Version None)
Quarter: 2006Q2

REPORT INFORMATION
  Report Type: 
  Country: None (occurrence: None)
  Receive Date: 20060616
  Receipt Date: 20060616
  Transmission Date: 20061013
  Serious: Yes (Other)
  Sender: FDA-Public Use
  Company Number: None

PATIENT
  Age: 71 Year
  Sex: Male
  Weight: 92.9874 kg

DRUGS (2)
  1. LEVEMIR [Suspect]
     Indication: DERMATITIS
     Dosage: 60 UNITS QAM
     Dates: start: 20060611, end: 20060616
  2. LEVEMIR [Suspect]
     Indication: HYPERSENSITIVITY
     Dosage: 60 UNITS QAM
     Dates: start: 20060611, end: 20060616

REACTIONS (2)
  - INJECTION SITE PRURITUS [None]
  - INJECTION SITE RASH [None]
